FAERS Safety Report 7805461-3 (Version None)
Quarter: 2011Q4

REPORT INFORMATION
  Report Type: 
  Country: None (occurrence: None)
  Receive Date: 20111010
  Receipt Date: 20110928
  Transmission Date: 20120403
  Serious: Yes (Hospitalization)
  Sender: FDA-Public Use
  Company Number: CO-ELI_LILLY_AND_COMPANY-CO201110000958

PATIENT
  Age: 55 Year
  Sex: Female

DRUGS (6)
  1. ASPIRIN [Concomitant]
     Dosage: UNK
  2. INDAPAMIDE [Concomitant]
     Dosage: UNK
  3. HUMALOG MIX 75/25 [Suspect]
     Indication: TYPE 2 DIABETES MELLITUS
     Dosage: 40 IU, EACH MORNING
     Route: 058
     Dates: start: 20110928
  4. HUMALOG MIX 75/25 [Suspect]
     Dosage: 24 IU, EACH EVENING
     Route: 058
     Dates: start: 20110928
  5. VALSARTAN [Concomitant]
     Dosage: UNK
  6. METOPROLOL TARTRATE [Concomitant]
     Dosage: UNK

REACTIONS (5)
  - BLOOD GLUCOSE ABNORMAL [None]
  - HYPERHIDROSIS [None]
  - VOMITING [None]
  - DISCOMFORT [None]
  - TREMOR [None]
